FAERS Safety Report 8173822-1 (Version None)
Quarter: 2012Q1

REPORT INFORMATION
  Report Type: 
  Country: None (occurrence: None)
  Receive Date: 20120229
  Receipt Date: 20120217
  Transmission Date: 20120608
  Serious: Yes (Hospitalization, Other)
  Sender: FDA-Public Use
  Company Number: US-ELI_LILLY_AND_COMPANY-US201111003776

PATIENT
  Sex: Female

DRUGS (4)
  1. FORTEO [Suspect]
     Dosage: 20 UG, QD
     Dates: end: 20111201
  2. CALCIUM [Concomitant]
     Dosage: 1500 MG, UNK
  3. FORTEO [Suspect]
     Indication: OSTEOPOROSIS
     Dosage: 20 UG, QD
     Dates: start: 20111027
  4. CALCIUM [Concomitant]
     Dosage: 500 MG, UNK

REACTIONS (12)
  - BLOOD CALCIUM INCREASED [None]
  - EXTRASYSTOLES [None]
  - ADVERSE REACTION [None]
  - HYPERTENSION [None]
  - TUMOUR MARKER INCREASED [None]
  - BLOOD CALCIUM ABNORMAL [None]
  - SOFT TISSUE NEOPLASM [None]
  - PERSONALITY CHANGE [None]
  - PAIN [None]
  - CONSTIPATION [None]
  - MALAISE [None]
  - DEPRESSED MOOD [None]
